FAERS Safety Report 15680920 (Version 2)
Quarter: 2019Q1

REPORT INFORMATION
  Report Type: Spontaneous
  Country: US (occurrence: US)
  Receive Date: 20181203
  Receipt Date: 20190326
  Transmission Date: 20190417
  Serious: No
  Sender: FDA-Public Use
  Company Number: US-BAUSCH-BL-2018-032552

PATIENT
  Age: 68 Year
  Sex: Female
  Weight: 53.12 kg

DRUGS (6)
  1. BESIVANCE [Suspect]
     Active Substance: BESIFLOXACIN
     Indication: CORNEAL TRANSPLANT
     Dosage: 4 DROPS A DAY FOR 3 WEEKS
     Route: 065
     Dates: start: 20181024, end: 201811
  2. DUREZOL [Concomitant]
     Active Substance: DIFLUPREDNATE
     Route: 065
  3. BESIVANCE [Suspect]
     Active Substance: BESIFLOXACIN
     Indication: PRODUCT USE IN UNAPPROVED INDICATION
  4. ILEVRO [Concomitant]
     Active Substance: NEPAFENAC
     Indication: PRODUCT USED FOR UNKNOWN INDICATION
     Route: 047
  5. DUREZOL [Concomitant]
     Active Substance: DIFLUPREDNATE
     Route: 065
  6. DUREZOL [Concomitant]
     Active Substance: DIFLUPREDNATE
     Indication: PRODUCT USED FOR UNKNOWN INDICATION
     Route: 065

REACTIONS (7)
  - Product use in unapproved indication [Unknown]
  - Ocular discomfort [Recovered/Resolved]
  - Lacrimation increased [Recovered/Resolved]
  - Eye disorder [Recovered/Resolved]
  - Pigmentation disorder [Recovered/Resolved]
  - Product administration error [Unknown]
  - Pruritus [Recovered/Resolved]

NARRATIVE: CASE EVENT DATE: 20181024
